FAERS Safety Report 6609578-0 (Version None)
Quarter: 2010Q1

REPORT INFORMATION
  Report Type: 
  Country: None (occurrence: None)
  Receive Date: 20100224
  Receipt Date: 20100210
  Transmission Date: 20100710
  Serious: Yes (Hospitalization)
  Sender: FDA-Public Use
  Company Number: 2010AL000976

PATIENT
  Age: 46 Year
  Sex: Male

DRUGS (6)
  1. DIAZEPAM TAB [Suspect]
     Indication: DRUG USE FOR UNKNOWN INDICATION
     Dosage: UNKNOWN; UNK; UNK
  2. CLONAZEPAM [Suspect]
     Indication: SEDATIVE THERAPY
     Dosage: 2 MG; UNK; UNK
  3. LYRICA [Concomitant]
  4. METHADONE HYDROCHLORIDE [Concomitant]
  5. MAREVAN [Concomitant]
  6. NEXIUM [Concomitant]

REACTIONS (13)
  - ALCOHOL USE [None]
  - CONFUSIONAL STATE [None]
  - DELUSION [None]
  - DEPRESSED LEVEL OF CONSCIOUSNESS [None]
  - FATIGUE [None]
  - MALAISE [None]
  - MEMORY IMPAIRMENT [None]
  - MIOSIS [None]
  - OEDEMA PERIPHERAL [None]
  - OVERDOSE [None]
  - PALLOR [None]
  - PNEUMONIA ASPIRATION [None]
  - TREATMENT NONCOMPLIANCE [None]
